FAERS Safety Report 9126614 (Version 1)
Quarter: 2013Q1

REPORT INFORMATION
  Report Type: Spontaneous
  Country: US (occurrence: US)
  Receive Date: 20130117
  Receipt Date: 20130117
  Transmission Date: 20140127
  Serious: No
  Sender: FDA-Public Use
  Company Number: US-009507513-1301USA008187

PATIENT
  Age: 74 Year
  Sex: Male
  Weight: 65.76 kg

DRUGS (1)
  1. CLARITIN [Suspect]
     Indication: PARANASAL SINUS HYPERSECRETION
     Dosage: 10 MG, BID
     Route: 048
     Dates: start: 20121217

REACTIONS (1)
  - Overdose [Recovering/Resolving]
